FAERS Safety Report 9678331 (Version 2)
Quarter: 2013Q4

REPORT INFORMATION
  Report Type: Spontaneous
  Country: CA (occurrence: CA)
  Receive Date: 20131108
  Receipt Date: 20131121
  Transmission Date: 20140711
  Serious: Yes (Death, Hospitalization)
  Sender: FDA-Public Use
  Company Number: CA-B.I. PHARMACEUTICALS,INC./RIDGEFIELD-2013-BI-36398CN

PATIENT
  Sex: Female

DRUGS (1)
  1. XARELTO [Suspect]

REACTIONS (2)
  - Haemorrhage [Fatal]
  - Cardiac pacemaker insertion [Unknown]
